FAERS Safety Report 19847793 (Version 3)
Quarter: 2021Q3

REPORT INFORMATION
  Report Type: Spontaneous
  Country: US (occurrence: US)
  Receive Date: 20210917
  Receipt Date: 20210927
  Transmission Date: 20211014
  Serious: Yes (Hospitalization)
  Sender: FDA-Public Use
  Company Number: US-PFIZER INC-202101091122

PATIENT
  Age: 74 Year
  Sex: Female
  Weight: 66.21 kg

DRUGS (1)
  1. CHANTIX [Suspect]
     Active Substance: VARENICLINE TARTRATE
     Indication: SMOKING CESSATION THERAPY
     Dosage: UNK UNK, 2X/DAY (10 2X DAY)
     Dates: start: 20210423

REACTIONS (6)
  - Dizziness [Recovered/Resolved]
  - Illness [Recovered/Resolved]
  - Loss of personal independence in daily activities [Unknown]
  - Vomiting [Unknown]
  - Abdominal discomfort [Recovered/Resolved]
  - Thinking abnormal [Unknown]

NARRATIVE: CASE EVENT DATE: 20210429
